FAERS Safety Report 13367904 (Version 2)
Quarter: 2017Q4

REPORT INFORMATION
  Report Type: Spontaneous
  Country: FR (occurrence: FR)
  Receive Date: 20170324
  Receipt Date: 20171019
  Transmission Date: 20180320
  Serious: Yes (Disabling, Other)
  Sender: FDA-Public Use
  Company Number: FR-ABBVIE-17P-056-1918690-00

PATIENT
  Age: 21 Month
  Sex: Female

DRUGS (1)
  1. DEPAKINE CHRONO [Suspect]
     Active Substance: VALPROATE SODIUM
     Indication: MATERNAL EXPOSURE TIMING UNSPECIFIED
     Route: 064

REACTIONS (6)
  - Ear infection [Unknown]
  - Pyrexia [Unknown]
  - Foetal exposure during pregnancy [Unknown]
  - Psychomotor retardation [Recovered/Resolved with Sequelae]
  - Seizure [Unknown]
  - Speech disorder developmental [Unknown]

NARRATIVE: CASE EVENT DATE: 20150816
